FAERS Safety Report 21757068 (Version 1)
Quarter: 2022Q4

REPORT INFORMATION
  Report Type: Spontaneous
  Country: US (occurrence: US)
  Receive Date: 20221220
  Receipt Date: 20221220
  Transmission Date: 20230113
  Serious: No
  Sender: FDA-Public Use
  Company Number: US-JNJFOC-20221238215

PATIENT
  Sex: Female

DRUGS (1)
  1. RISPERDAL [Suspect]
     Active Substance: RISPERIDONE
     Indication: Major depression
     Route: 065

REACTIONS (1)
  - Drug ineffective [Unknown]

NARRATIVE: CASE EVENT DATE: 20200701
